FAERS Safety Report 7176820-X (Version None)
Quarter: 2010Q4

REPORT INFORMATION
  Report Type: 
  Country: None (occurrence: None)
  Receive Date: 20101216
  Receipt Date: 20101216
  Transmission Date: 20110411
  Serious: No
  Sender: FDA-Public Use
  Company Number: None

PATIENT
  Age: 8 Year
  Sex: Male
  Weight: 31.7518 kg

DRUGS (1)
  1. TAMIFLU [Suspect]
     Indication: INFLUENZA
     Dosage: 1 TSP 2 X DAY PO ONE DOSE
     Route: 048
     Dates: start: 20101214, end: 20101214

REACTIONS (8)
  - CONFUSIONAL STATE [None]
  - DISORIENTATION [None]
  - HALLUCINATION [None]
  - MUSCLE TIGHTNESS [None]
  - MYDRIASIS [None]
  - SLEEP DISORDER [None]
  - TREMOR [None]
  - UNRESPONSIVE TO STIMULI [None]
